FAERS Safety Report 8952501 (Version 2)
Quarter: 2013Q2

REPORT INFORMATION
  Report Type: Report from Study
  Country: CA (occurrence: CA)
  Receive Date: 20121205
  Receipt Date: 20130410
  Transmission Date: 20140414
  Serious: Yes (Life-Threatening, Hospitalization)
  Sender: FDA-Public Use
  Company Number: CA-UCBSA-072269

PATIENT
  Age: 66 Year
  Sex: Female
  Weight: 67.7 kg

DRUGS (14)
  1. CIMZIA [Suspect]
     Indication: RHEUMATOID ARTHRITIS
     Route: 058
     Dates: start: 20120229, end: 201208
  2. METHOTREXATE [Concomitant]
     Indication: RHEUMATOID ARTHRITIS
     Route: 058
     Dates: start: 199912
  3. FOLIC ACID [Concomitant]
     Dosage: Q 5/7 DAYS
     Route: 048
  4. KETOPROFEN [Concomitant]
     Route: 048
  5. EFFEXOR [Concomitant]
     Route: 048
  6. EPIVAL [Concomitant]
     Route: 048
  7. TRAZADONE [Concomitant]
     Route: 048
  8. ARTHROTEC [Concomitant]
     Route: 048
  9. SYNTHROID [Concomitant]
     Route: 048
  10. ACTONEL [Concomitant]
     Route: 048
  11. VITAMIN B12 [Concomitant]
     Dosage: 1000 MG
     Route: 048
  12. VITAMIN D [Concomitant]
     Route: 048
  13. CALCIUM [Concomitant]
     Route: 048
  14. ECTOSOME [Concomitant]
     Route: 061

REACTIONS (1)
  - Intracranial aneurysm [Recovering/Resolving]
